FAERS Safety Report 8479045-0 (Version None)
Quarter: 2012Q2

REPORT INFORMATION
  Report Type: 
  Country: None (occurrence: None)
  Receive Date: 20120629
  Receipt Date: 20050804
  Transmission Date: 20120825
  Serious: Yes (Other)
  Sender: FDA-Public Use
  Company Number: JP-ROCHE-GNE216677

PATIENT
  Sex: Male

DRUGS (3)
  1. RITUXAN [Suspect]
     Indication: NON-HODGKIN'S LYMPHOMA
     Dosage: 25 MG, UNK
     Route: 042
     Dates: start: 20050728, end: 20050728
  2. ACETAMINOPHEN [Concomitant]
     Indication: PREMEDICATION
     Dosage: UNK, UNK
     Route: 048
     Dates: start: 20050728
  3. DIPHENHYDRAMINE HYDROCHLORIDE [Concomitant]
     Indication: PREMEDICATION
     Dosage: UNK, UNK
     Route: 048
     Dates: start: 20050728

REACTIONS (2)
  - CEREBRAL HAEMORRHAGE [None]
  - PYREXIA [None]
